FAERS Safety Report 21500119 (Version 1)
Quarter: 2022Q4

REPORT INFORMATION
  Report Type: Spontaneous
  Country: None (occurrence: US)
  Receive Date: 20221024
  Receipt Date: 20221024
  Transmission Date: 20230113
  Serious: No
  Sender: FDA-Public Use
  Company Number: US-Mission Pharmacal Company-2134144

PATIENT
  Age: 60 Year
  Sex: Male

DRUGS (9)
  1. THIOLA EC [Suspect]
     Active Substance: TIOPRONIN
     Indication: Cystinuria
     Route: 048
     Dates: start: 20150126
  2. TERAZOSIN [Concomitant]
     Active Substance: TERAZOSIN HYDROCHLORIDE
  3. METOPROLOL TARTRATE [Concomitant]
     Active Substance: METOPROLOL TARTRATE
  4. AMLODIPINE [Concomitant]
     Active Substance: AMLODIPINE BESYLATE
  5. VALSARTAN [Concomitant]
     Active Substance: VALSARTAN
  6. ZETIA [Concomitant]
     Active Substance: EZETIMIBE
  7. ASPIRIN [Concomitant]
     Active Substance: ASPIRIN
  8. FINASTERIDE [Concomitant]
     Active Substance: FINASTERIDE
  9. ALLOPURINOL [Concomitant]
     Active Substance: ALLOPURINOL

REACTIONS (1)
  - Drug ineffective [Not Recovered/Not Resolved]
